FAERS Safety Report 17278963 (Version 3)
Quarter: 2020Q1

REPORT INFORMATION
  Report Type: Report from Study
  Country: TW (occurrence: TW)
  Receive Date: 20200116
  Receipt Date: 20200122
  Transmission Date: 20200409
  Serious: Yes (Hospitalization)
  Sender: FDA-Public Use
  Company Number: TW-EISAI MEDICAL RESEARCH-EC-2020-068529

PATIENT
  Age: 61 Year
  Sex: Male
  Weight: 69 kg

DRUGS (10)
  1. BARACLUDE [Concomitant]
     Active Substance: ENTECAVIR
     Dates: start: 20120724
  2. PLENDIL [Concomitant]
     Active Substance: FELODIPINE
     Dates: start: 20111213
  3. TETRACYCLINE HYDROCHLORIDE. [Concomitant]
     Active Substance: TETRACYCLINE HYDROCHLORIDE
     Dates: start: 20191226
  4. ELOMET [Concomitant]
     Active Substance: MOMETASONE FUROATE
     Dates: start: 20191226
  5. LENVATINIB [Suspect]
     Active Substance: LENVATINIB
     Indication: HEPATOCELLULAR CARCINOMA
     Route: 048
     Dates: start: 20191217, end: 20200101
  6. TRANDATE [Concomitant]
     Active Substance: LABETALOL HYDROCHLORIDE
     Dates: start: 20191206
  7. NEXIUM [Concomitant]
     Active Substance: ESOMEPRAZOLE MAGNESIUM
     Dates: start: 20191213
  8. IMOVANE [Concomitant]
     Active Substance: ZOPICLONE
     Dates: start: 20191225
  9. EURODIN [Concomitant]
     Dates: start: 20180724, end: 20191224
  10. PEMBROLIZUMAB. [Suspect]
     Active Substance: PEMBROLIZUMAB
     Indication: HEPATOCELLULAR CARCINOMA
     Dosage: BLINDED
     Dates: start: 20191217, end: 20191217

REACTIONS (2)
  - Myasthenia gravis [Not Recovered/Not Resolved]
  - Immune-mediated hepatitis [Not Recovered/Not Resolved]

NARRATIVE: CASE EVENT DATE: 20191231
